FAERS Safety Report 11993309 (Version 1)
Quarter: 2016Q1

REPORT INFORMATION
  Report Type: Report from Study
  Country: BR (occurrence: BR)
  Receive Date: 20160203
  Receipt Date: 20160203
  Transmission Date: 20160526
  Serious: Yes (Life-Threatening, Hospitalization, Other)
  Sender: FDA-Public Use
  Company Number: PHHY2016BR012279

PATIENT
  Age: 19 Year
  Sex: Female
  Weight: 70 kg

DRUGS (3)
  1. TRILEPTAL [Suspect]
     Active Substance: OXCARBAZEPINE
     Indication: FEELING ABNORMAL
     Dosage: 300 MG, QD
     Route: 048
     Dates: start: 2007
  2. TRILEPTAL [Suspect]
     Active Substance: OXCARBAZEPINE
     Dosage: 600 MG, QD
     Route: 048
     Dates: end: 2010
  3. LAMOTRIGINE. [Concomitant]
     Active Substance: LAMOTRIGINE
     Indication: PRODUCT USED FOR UNKNOWN INDICATION
     Route: 065

REACTIONS (7)
  - Encephalitis [Recovered/Resolved with Sequelae]
  - Catatonia [Unknown]
  - Product use issue [Unknown]
  - Seizure [Not Recovered/Not Resolved]
  - Antisocial behaviour [Unknown]
  - Anger [Unknown]
  - Meningitis viral [Unknown]

NARRATIVE: CASE EVENT DATE: 20131022
